FAERS Safety Report 6934740-7 (Version None)
Quarter: 2010Q3

REPORT INFORMATION
  Report Type: 
  Country: None (occurrence: None)
  Receive Date: 20100820
  Receipt Date: 20100812
  Transmission Date: 20110219
  Serious: Yes (Other)
  Sender: FDA-Public Use
  Company Number: US-AMGEN-QUU423963

PATIENT
  Sex: Male
  Weight: 85.4 kg

DRUGS (2)
  1. NPLATE [Suspect]
     Indication: IDIOPATHIC THROMBOCYTOPENIC PURPURA
     Route: 058
     Dates: start: 20100125
  2. IMMU-G [Concomitant]
     Route: 042
     Dates: start: 20050707

REACTIONS (5)
  - BLOOD SMEAR TEST ABNORMAL [None]
  - BONE MARROW DISORDER [None]
  - CD4/CD8 RATIO DECREASED [None]
  - EPISTAXIS [None]
  - PETECHIAE [None]
